FAERS Safety Report 20136879 (Version 2)
Quarter: 2021Q4

REPORT INFORMATION
  Report Type: Spontaneous
  Country: US (occurrence: US)
  Receive Date: 20211201
  Receipt Date: 20211222
  Transmission Date: 20220303
  Serious: Yes (Other)
  Sender: FDA-Public Use
  Company Number: US-INCYTE CORPORATION-2021IN010970

PATIENT

DRUGS (3)
  1. JAKAFI [Suspect]
     Active Substance: RUXOLITINIB
     Indication: Myeloproliferative neoplasm
     Dosage: 10 MILLIGRAM BID (MON,WED) + QD ON ALL OTHER DAYS OF THE WEEK
     Route: 048
  2. JAKAFI [Suspect]
     Active Substance: RUXOLITINIB
     Dosage: 10 MILLIGRAM BID (MON,WED) + QD ON ALL OTHER DAYS OF THE WEEK
     Route: 048
     Dates: start: 20200417
  3. JAKAFI [Suspect]
     Active Substance: RUXOLITINIB
     Dosage: 10 MILLIGRAM BID (MON,WED) + QD ON ALL OTHER DAYS
     Route: 048
     Dates: start: 20200418

REACTIONS (3)
  - Skin cancer [Unknown]
  - Onychoclasis [Unknown]
  - Off label use [Unknown]
